FAERS Safety Report 6706259-X (Version None)
Quarter: 2010Q2

REPORT INFORMATION
  Report Type: 
  Country: None (occurrence: None)
  Receive Date: 20100423
  Receipt Date: 20100120
  Transmission Date: 20101027
  Serious: No
  Sender: FDA-Public Use
  Company Number: ALL1-2010-00285

PATIENT
  Age: 52 Year
  Sex: Male
  Weight: 101.6 kg

DRUGS (2)
  1. VYVANSE [Suspect]
     Indication: ATTENTION DEFICIT/HYPERACTIVITY DISORDER
     Dosage: 40 MG, 1X/DAY;QD, ORAL
     Route: 048
     Dates: start: 20090701, end: 20100115
  2. LUNESTA [Concomitant]

REACTIONS (4)
  - DEPRESSION [None]
  - DRUG INEFFECTIVE [None]
  - FEELING ABNORMAL [None]
  - SOMNOLENCE [None]
